FAERS Safety Report 10048881 (Version 4)
Quarter: 2015Q1

REPORT INFORMATION
  Report Type: Spontaneous
  Country: US (occurrence: None)
  Receive Date: 20140327
  Receipt Date: 20150306
  Transmission Date: 20150720
  Serious: Yes (Disabling, Other)
  Sender: FDA-Public Use
  Company Number: UTC-046215

PATIENT
  Age: 83 Year
  Sex: Male
  Weight: 73 kg

DRUGS (4)
  1. TYVASO [Suspect]
     Active Substance: TREPROSTINIL
     Indication: ESSENTIAL HYPERTENSION
     Dosage: 18 TO 54 MICROGRAMS (4 IN 1 D) INHALATION
     Route: 055
     Dates: start: 20140313, end: 20140520
  2. WARFARIN (WARFARIN) [Concomitant]
     Active Substance: WARFARIN
  3. TYVASO [Suspect]
     Active Substance: TREPROSTINIL
     Indication: PULMONARY ARTERIAL HYPERTENSION
     Dosage: 18 TO 54 MICROGRAMS (4 IN 1 D) INHALATION
     Route: 055
     Dates: start: 20140313, end: 20140520
  4. ADCIRCA [Concomitant]
     Active Substance: TADALAFIL

REACTIONS (6)
  - Oxygen consumption increased [None]
  - Cough [None]
  - Oxygen saturation decreased [None]
  - Dyspnoea [None]
  - Fatigue [None]
  - Drug ineffective [None]

NARRATIVE: CASE EVENT DATE: 20140314
